FAERS Safety Report 7817718-0 (Version None)
Quarter: 2011Q4

REPORT INFORMATION
  Report Type: 
  Country: None (occurrence: None)
  Receive Date: 20111017
  Receipt Date: 20111004
  Transmission Date: 20120403
  Serious: Yes (Other)
  Sender: FDA-Public Use
  Company Number: GB-JNJFOC-20111002789

PATIENT
  Sex: Male

DRUGS (2)
  1. REGAINE EXTRA STRENGTH 5% [Suspect]
     Route: 065
  2. REGAINE EXTRA STRENGTH 5% [Suspect]
     Indication: PRODUCT USED FOR UNKNOWN INDICATION
     Route: 065
     Dates: start: 20110801

REACTIONS (1)
  - CONVULSION [None]
